FAERS Safety Report 15623381 (Version 1)
Quarter: 2018Q4

REPORT INFORMATION
  Report Type: Spontaneous
  Country: None (occurrence: US)
  Receive Date: 20181115
  Receipt Date: 20181115
  Transmission Date: 20190205
  Serious: No
  Sender: FDA-Public Use
  Company Number: US-MEDAC PHARMA, INC.-2058919

PATIENT
  Sex: Female

DRUGS (2)
  1. RASUVO [Suspect]
     Active Substance: METHOTREXATE SODIUM
     Indication: RHEUMATOID ARTHRITIS
     Dates: start: 201710, end: 201803
  2. XELJANZ [Concomitant]
     Active Substance: TOFACITINIB CITRATE
     Route: 048
     Dates: start: 201711, end: 201711

REACTIONS (4)
  - Nausea [Unknown]
  - Drug ineffective [Not Recovered/Not Resolved]
  - Alopecia [Not Recovered/Not Resolved]
  - Dizziness [Unknown]

NARRATIVE: CASE EVENT DATE: 2017
